FAERS Safety Report 6728448-0 (Version None)
Quarter: 2010Q2

REPORT INFORMATION
  Report Type: 
  Country: None (occurrence: None)
  Receive Date: 20100517
  Receipt Date: 20100506
  Transmission Date: 20101027
  Serious: Yes (Other)
  Sender: FDA-Public Use
  Company Number: DE-CEPHALON-2010002641

PATIENT
  Sex: Female
  Weight: 85 kg

DRUGS (12)
  1. TREANDA [Suspect]
     Indication: HODGKIN'S DISEASE
     Dates: start: 20100331, end: 20100331
  2. TREANDA [Suspect]
     Dates: start: 20100421, end: 20100421
  3. SIMVASTATIN [Concomitant]
     Indication: LIPID METABOLISM DISORDER
  4. COTRIM [Concomitant]
     Indication: ANTIFUNGAL PROPHYLAXIS
  5. COTRIM [Concomitant]
  6. PANTOZOL [Concomitant]
     Indication: PROPHYLAXIS
  7. CANDESARTAN [Concomitant]
     Indication: CARDIAC DISORDER
  8. ASPIRIN [Concomitant]
     Indication: CARDIAC DISORDER
  9. TORSEMIDE [Concomitant]
     Indication: MYOCARDIAL INFARCTION
  10. PREDNISONE TAB [Concomitant]
     Indication: RHEUMATOID ARTHRITIS
  11. BISOPROLOL [Concomitant]
     Indication: MYOCARDIAL INFARCTION
  12. ERYTHROMYCIN ETHYLSUCCINATE [Concomitant]

REACTIONS (9)
  - BLOOD CREATINE PHOSPHOKINASE INCREASED [None]
  - BLOOD CREATININE INCREASED [None]
  - C-REACTIVE PROTEIN [None]
  - DIARRHOEA [None]
  - INFECTION [None]
  - NAUSEA [None]
  - PYREXIA [None]
  - RESPIRATORY DISTRESS [None]
  - RHABDOMYOLYSIS [None]
